FAERS Safety Report 8564079-8 (Version None)
Quarter: 2012Q3

REPORT INFORMATION
  Report Type: 
  Country: None (occurrence: None)
  Receive Date: 20120803
  Receipt Date: 20120724
  Transmission Date: 20120928
  Serious: Yes (Hospitalization)
  Sender: FDA-Public Use
  Company Number: US-BAYER-2012-024546

PATIENT
  Age: 21 Year
  Sex: Female
  Weight: 61.224 kg

DRUGS (11)
  1. YAZ [Suspect]
     Indication: ACNE
  2. LEVAQUIN [Concomitant]
     Indication: URINARY TRACT INFECTION
  3. IBUPROFEN [Concomitant]
  4. FLUCONAZOLE [Concomitant]
     Dosage: 150 MG, QD
  5. BETAMETHASONE W/CLOTRIMAZOLE [Concomitant]
     Indication: ACNE
     Dosage: UNK UNK, QD
     Dates: start: 20100322, end: 20100426
  6. YAZ [Suspect]
     Indication: PREMENSTRUAL SYNDROME
  7. YAZ [Suspect]
     Indication: CONTRACEPTION
     Dosage: UNK
     Dates: start: 20100310, end: 20100426
  8. IBUPROFEN (ADVIL) [Concomitant]
     Dosage: UNK UNK, PRN
  9. DOXYCYCLINE HCL [Concomitant]
     Indication: ACNE
     Dosage: UNK UNK, QD
     Dates: start: 20100325, end: 20100407
  10. METRONIDAZOLE [Concomitant]
     Indication: ACNE
     Dosage: UNK UNK, QD
     Dates: start: 20100325, end: 20100407
  11. TYLENOL (CAPLET) [Concomitant]
     Dosage: UNK UNK, PRN

REACTIONS (6)
  - PAIN [None]
  - ANXIETY [None]
  - MENTAL DISORDER [None]
  - PULMONARY EMBOLISM [None]
  - PELVIC VENOUS THROMBOSIS [None]
  - ANHEDONIA [None]
